FAERS Safety Report 16658969 (Version 1)
Quarter: 2019Q3

REPORT INFORMATION
  Report Type: Spontaneous
  Country: CA (occurrence: CA)
  Receive Date: 20190801
  Receipt Date: 20190801
  Transmission Date: 20191004
  Serious: Yes (Hospitalization)
  Sender: FDA-Public Use
  Company Number: CA-HLSUS-2019-CA-000838

PATIENT
  Age: 33 Year
  Sex: Male

DRUGS (2)
  1. CITALOPRAM [Concomitant]
     Active Substance: CITALOPRAM HYDROBROMIDE
  2. CLOZAPINE. [Suspect]
     Active Substance: CLOZAPINE
     Indication: SCHIZOPHRENIA
     Dosage: 100 MG 1 EVERY 1 DAY
     Route: 048

REACTIONS (21)
  - Seizure [Recovered/Resolved]
  - Blood osmolarity increased [Recovered/Resolved]
  - Depressed level of consciousness [Recovered/Resolved]
  - Hyponatraemia [Recovered/Resolved]
  - Coma scale abnormal [Recovered/Resolved]
  - Urine sodium abnormal [Recovered/Resolved]
  - White blood cell analysis abnormal [Recovered/Resolved]
  - Blood creatine abnormal [Recovered/Resolved]
  - Blood creatine phosphokinase increased [Recovered/Resolved]
  - Cardiometabolic syndrome [Recovered/Resolved]
  - Neutrophil count abnormal [Recovered/Resolved]
  - Aspartate aminotransferase increased [Recovered/Resolved]
  - pH body fluid abnormal [Recovered/Resolved]
  - Pyrexia [Recovered/Resolved]
  - Urine potassium abnormal [Recovered/Resolved]
  - Blood lactate dehydrogenase increased [Recovered/Resolved]
  - Blood lactic acid increased [Recovered/Resolved]
  - Unresponsive to stimuli [Recovered/Resolved]
  - Confusional state [Recovered/Resolved]
  - Neuroleptic malignant syndrome [Recovered/Resolved]
  - Blood glucose abnormal [Recovered/Resolved]
